FAERS Safety Report 5614703-4 (Version None)
Quarter: 2008Q1

REPORT INFORMATION
  Report Type: 
  Country: None (occurrence: None)
  Receive Date: 20080205
  Receipt Date: 20080128
  Transmission Date: 20080703
  Serious: Yes (Disabling, Other)
  Sender: FDA-Public Use
  Company Number: PHBS2007JP21603

PATIENT
  Sex: Male

DRUGS (1)
  1. TEGRETOL [Suspect]
     Indication: TRIGEMINAL NEURALGIA
     Route: 048

REACTIONS (5)
  - AGEUSIA [None]
  - ANOSMIA [None]
  - GLOSSITIS [None]
  - NASAL MUCOSAL DISORDER [None]
  - RASH [None]
